FAERS Safety Report 14519621 (Version 1)
Quarter: 2018Q1

REPORT INFORMATION
  Report Type: Spontaneous
  Country: US (occurrence: US)
  Receive Date: 20180210
  Receipt Date: 20180210
  Transmission Date: 20180509
  Serious: No
  Sender: FDA-Public Use
  Company Number: None

PATIENT
  Age: 61 Year
  Sex: Male

DRUGS (10)
  1. VITAMIN D3 [Concomitant]
     Active Substance: CHOLECALCIFEROL
  2. BACLOFEN. [Concomitant]
     Active Substance: BACLOFEN
  3. CLARITIN [Concomitant]
     Active Substance: LORATADINE
  4. GILENYA [Suspect]
     Active Substance: FINGOLIMOD HYDROCHLORIDE
     Indication: MULTIPLE SCLEROSIS
     Route: 048
     Dates: start: 20150331
  5. IBUPROFEN. [Concomitant]
     Active Substance: IBUPROFEN
  6. MULTI VIT [Concomitant]
  7. COD LIVER [Concomitant]
     Active Substance: COD LIVER OIL
  8. TURMERIC [Concomitant]
     Active Substance: HERBALS\TURMERIC
  9. MAGNESIUM [Concomitant]
     Active Substance: MAGNESIUM
  10. ASPIRIN. [Concomitant]
     Active Substance: ASPIRIN

REACTIONS (1)
  - Neoplasm malignant [None]

NARRATIVE: CASE EVENT DATE: 20171227
